FAERS Safety Report 26028830 (Version 1)
Quarter: 2025Q4

REPORT INFORMATION
  Report Type: Spontaneous
  Country: EU (occurrence: EU)
  Receive Date: 20251112
  Receipt Date: 20251112
  Transmission Date: 20260117
  Serious: Yes (Congenital Anomaly, Other)
  Sender: AUROBINDO
  Company Number: EU-EMB-M202402742-1

PATIENT
  Sex: Male

DRUGS (5)
  1. DULOXETINE [Suspect]
     Active Substance: DULOXETINE
     Indication: Depression
     Dosage: 60 MG/D
     Route: 064
     Dates: start: 202401, end: 202410
  2. DULOXETINE [Suspect]
     Active Substance: DULOXETINE
     Indication: Endometriosis
  3. PROGESTERONE [Suspect]
     Active Substance: PROGESTERONE
     Indication: Prophylaxis of abortion
     Dosage: 200 MILLIGRAM, ONCE A DAY
     Route: 064
     Dates: start: 202401
  4. DIPHTHERIA AND TETANUS TOXOIDS AND PERTUSSIS VACCINE [Concomitant]
     Active Substance: DIPHTHERIA AND TETANUS TOXOIDS AND PERTUSSIS VACCINE
     Indication: Immunisation
     Dosage: UNK
     Dates: start: 202408
  5. INFLUENZA VIRUS VACCINE [Concomitant]
     Active Substance: INFLUENZA VIRUS VACCINE
     Indication: Immunisation
     Dosage: UNK
     Route: 064
     Dates: start: 202409

REACTIONS (3)
  - Ventricular septal defect [Not Recovered/Not Resolved]
  - Atrial septal defect [Not Recovered/Not Resolved]
  - Foetal exposure during pregnancy [Unknown]

NARRATIVE: CASE EVENT DATE: 20241001
